FAERS Safety Report 25333808 (Version 8)
Quarter: 2025Q4

REPORT INFORMATION
  Report Type: Spontaneous
  Country: US (occurrence: US)
  Receive Date: 20250520
  Receipt Date: 20251210
  Transmission Date: 20260119
  Serious: No
  Sender: KARYOPHARM THERAPEUTICS
  Company Number: US-KARYOPHARM-2025KPT100284

PATIENT

DRUGS (14)
  1. SELINEXOR [Suspect]
     Active Substance: SELINEXOR
     Indication: Endometrial cancer
     Dosage: 60 MG WEEKLY
     Route: 048
     Dates: start: 20240531
  2. SELINEXOR [Suspect]
     Active Substance: SELINEXOR
  3. AMLODIPINE [Concomitant]
     Active Substance: AMLODIPINE BESYLATE
  4. XALATAN [Concomitant]
     Active Substance: LATANOPROST
  5. ZOFRAN [Concomitant]
     Active Substance: ONDANSETRON HYDROCHLORIDE
  6. CARBOPLATIN [Concomitant]
     Active Substance: CARBOPLATIN
  7. COSOPT [Concomitant]
     Active Substance: DORZOLAMIDE HYDROCHLORIDE\TIMOLOL MALEATE
  8. DEXAMETHASONE [Concomitant]
     Active Substance: DEXAMETHASONE
  9. FOSAPREPITANT DIMEGLUMINE [Concomitant]
     Active Substance: FOSAPREPITANT DIMEGLUMINE
  10. HERCEPTIN [Concomitant]
     Active Substance: TRASTUZUMAB
  11. HYDROCHLOROTHIAZIDE [Concomitant]
     Active Substance: HYDROCHLOROTHIAZIDE
  12. JARDIANCE [Concomitant]
     Active Substance: EMPAGLIFLOZIN
  13. PACLITAXEL [Concomitant]
     Active Substance: PACLITAXEL
  14. PALONOSETRON [Concomitant]
     Active Substance: PALONOSETRON

REACTIONS (6)
  - Nausea [Not Recovered/Not Resolved]
  - Blood pressure decreased [Unknown]
  - Blood pressure increased [Unknown]
  - Productive cough [Recovered/Resolved]
  - Headache [Unknown]
  - Inappropriate schedule of product administration [Unknown]

NARRATIVE: CASE EVENT DATE: 20250101
